FAERS Safety Report 5960885-4 (Version None)
Quarter: 2008Q4

REPORT INFORMATION
  Report Type: 
  Country: None (occurrence: None)
  Receive Date: 20081118
  Receipt Date: 20081111
  Transmission Date: 20090506
  Serious: Yes (Hospitalization)
  Sender: FDA-Public Use
  Company Number: 200811IM000324

PATIENT
  Age: 34 Year
  Sex: Male

DRUGS (10)
  1. IMMUKIN [Suspect]
     Indication: MYCOBACTERIUM ABSCESSUS INFECTION
     Dosage: SUBCUTANEOUS
     Route: 058
  2. IMMUKIN [Suspect]
     Indication: PSEUDOMONAS INFECTION
     Dosage: SUBCUTANEOUS
     Route: 058
  3. CLARITHROMYCIN [Suspect]
     Indication: MYCOBACTERIUM ABSCESSUS INFECTION
  4. COLISTIN SULFATE [Suspect]
     Dosage: INTRAVENOUS
     Route: 042
  5. MEROPENEM [Suspect]
     Dosage: INTRAVENOUS
     Route: 042
  6. MINOCYCLINE HCL [Concomitant]
     Indication: MYCOBACTERIUM ABSCESSUS INFECTION
  7. MINOCYCLINE HCL [Concomitant]
     Indication: PSEUDOMONAS INFECTION
  8. OMEPRAZOLE [Suspect]
     Indication: GASTROOESOPHAGEAL REFLUX DISEASE
  9. TOBRAMYCIN SULFATE INJECTION [Suspect]
     Indication: MYCOBACTERIUM ABSCESSUS INFECTION
  10. TOBRAMYCIN SULFATE INJECTION [Suspect]
     Indication: PSEUDOMONAS INFECTION

REACTIONS (13)
  - ABDOMINAL DISTENSION [None]
  - ABDOMINAL PAIN [None]
  - ABDOMINAL PAIN LOWER [None]
  - COLITIS [None]
  - CONDITION AGGRAVATED [None]
  - DEHYDRATION [None]
  - DIARRHOEA [None]
  - HYPOTENSION [None]
  - LUNG DISORDER [None]
  - NAUSEA [None]
  - PSEUDOMEMBRANOUS COLITIS [None]
  - PYREXIA [None]
  - TACHYCARDIA [None]
